FAERS Safety Report 8541815-8 (Version None)
Quarter: 2012Q3

REPORT INFORMATION
  Report Type: 
  Country: None (occurrence: None)
  Receive Date: 20120726
  Receipt Date: 20110829
  Transmission Date: 20120928
  Serious: No
  Sender: FDA-Public Use
  Company Number: US-ASTRAZENECA-2011SE52124

PATIENT
  Age: 39 Year
  Sex: Male

DRUGS (7)
  1. SEROQUEL XR [Suspect]
     Route: 048
  2. CLONAZEPAM [Concomitant]
  3. ENALAPRIL MALEATE [Concomitant]
  4. SERTRALINE HYDROCHLORIDE [Concomitant]
  5. OMEPRAZOLE [Concomitant]
  6. CYCLOBENAZPRINE [Concomitant]
  7. HYDROCHLOROTHIAZIDE [Concomitant]

REACTIONS (1)
  - CHEST PAIN [None]
